FAERS Safety Report 6104513-6 (Version None)
Quarter: 2009Q1

REPORT INFORMATION
  Report Type: 
  Country: None (occurrence: None)
  Receive Date: 20090227
  Receipt Date: 20080430
  Transmission Date: 20090719
  Serious: Yes (Hospitalization)
  Sender: FDA-Public Use
  Company Number: RB-1082-2008

PATIENT
  Sex: Male
  Weight: 22.6799 kg

DRUGS (1)
  1. SUBOXONE [Suspect]
     Indication: ACCIDENTAL EXPOSURE
     Dosage: ATE 10 SUBOXONE; 8 MG TABLETS ORAL
     Route: 048
     Dates: start: 20080430, end: 20080430

REACTIONS (3)
  - ACCIDENTAL EXPOSURE [None]
  - BRADYCARDIA [None]
  - RESPIRATORY DEPRESSION [None]
